FAERS Safety Report 15350423 (Version 2)
Quarter: 2018Q3

REPORT INFORMATION
  Report Type: Spontaneous
  Country: PL (occurrence: PL)
  Receive Date: 20180905
  Receipt Date: 20180927
  Transmission Date: 20181010
  Serious: Yes (Hospitalization, Other)
  Sender: FDA-Public Use
  Company Number: PL-B.I. PHARMACEUTICALS,INC./RIDGEFIELD-2018-BI-044050

PATIENT
  Age: 70 Year
  Sex: Male

DRUGS (13)
  1. METOPROLOL. [Suspect]
     Active Substance: METOPROLOL
     Indication: PRODUCT USED FOR UNKNOWN INDICATION
     Route: 065
  2. FLOMAX [Suspect]
     Active Substance: TAMSULOSIN HYDROCHLORIDE
     Indication: BENIGN PROSTATIC HYPERPLASIA
     Route: 065
  3. FLUOCINOLONE [Suspect]
     Active Substance: FLUOCINOLONE
     Indication: PRODUCT USED FOR UNKNOWN INDICATION
     Route: 065
  4. CIPROFLOXACIN. [Suspect]
     Active Substance: CIPROFLOXACIN
     Indication: PROSTATITIS
     Route: 065
  5. DULOXETINE. [Suspect]
     Active Substance: DULOXETINE
     Route: 065
  6. DIGOXIN. [Concomitant]
     Active Substance: DIGOXIN
     Indication: PRODUCT USED FOR UNKNOWN INDICATION
     Route: 065
  7. ALPHA LIPOIC ACID [Concomitant]
     Active Substance: .ALPHA.-LIPOIC ACID
     Indication: PRODUCT USED FOR UNKNOWN INDICATION
     Route: 065
  8. METFORMIN [Concomitant]
     Active Substance: METFORMIN HYDROCHLORIDE
     Indication: PRODUCT USED FOR UNKNOWN INDICATION
     Route: 065
  9. DULOXETINE. [Suspect]
     Active Substance: DULOXETINE
     Indication: DEPRESSIVE SYMPTOM
     Route: 065
  10. DABIGATRAN [Concomitant]
     Active Substance: DABIGATRAN
     Indication: PRODUCT USED FOR UNKNOWN INDICATION
     Route: 065
  11. CIPROFLOXACIN. [Suspect]
     Active Substance: CIPROFLOXACIN
     Route: 048
  12. QUETIAPINE. [Suspect]
     Active Substance: QUETIAPINE
     Indication: DEPRESSIVE SYMPTOM
     Route: 065
  13. METOPROLOL. [Suspect]
     Active Substance: METOPROLOL
     Route: 065

REACTIONS (16)
  - Yawning [Recovered/Resolved]
  - Syncope [Recovered/Resolved]
  - Anhedonia [Recovered/Resolved]
  - Urinary retention [Recovered/Resolved]
  - Prostatitis [Recovered/Resolved]
  - Affective disorder [Recovered/Resolved]
  - Dizziness [Recovered/Resolved]
  - Nausea [Recovered/Resolved]
  - Bradycardia [Recovered/Resolved]
  - Anxiety [Recovered/Resolved]
  - Headache [Recovered/Resolved]
  - Diplopia [Recovered/Resolved]
  - Pain [Recovered/Resolved]
  - Tremor [Recovered/Resolved]
  - Initial insomnia [Recovered/Resolved]
  - Depressed mood [Recovered/Resolved]
